FAERS Safety Report 22102246 (Version 1)
Quarter: 2023Q1

REPORT INFORMATION
  Report Type: Spontaneous
  Country: US (occurrence: US)
  Receive Date: 20230316
  Receipt Date: 20230316
  Transmission Date: 20230417
  Serious: Yes (Other)
  Sender: FDA-Public Use
  Company Number: US-GSKCCFUS-Case-01651002_AE-93196

PATIENT

DRUGS (1)
  1. TRELEGY ELLIPTA [Suspect]
     Active Substance: FLUTICASONE FUROATE\UMECLIDINIUM BROMIDE\VILANTEROL TRIFENATATE
     Indication: Chronic obstructive pulmonary disease
     Dosage: 1 NCI, CO 100/62.5/25
     Route: 055

REACTIONS (4)
  - Cardiac flutter [Unknown]
  - Palpitations [Not Recovered/Not Resolved]
  - Sleep apnoea syndrome [Unknown]
  - Wrong technique in device usage process [Unknown]
